FAERS Safety Report 6176145-5 (Version None)
Quarter: 2009Q2

REPORT INFORMATION
  Report Type: 
  Country: None (occurrence: None)
  Receive Date: 20090501
  Receipt Date: 20090421
  Transmission Date: 20091009
  Serious: Yes (Hospitalization)
  Sender: FDA-Public Use
  Company Number: FR-ELI_LILLY_AND_COMPANY-FR200904004438

PATIENT
  Age: 1 Day
  Sex: Female

DRUGS (2)
  1. ZYPREXA [Suspect]
     Dosage: 3.75 MG, DAILY (1/D)
     Route: 064
     Dates: start: 20090101, end: 20090101
  2. ZYPREXA [Suspect]
     Dosage: 2.5 MG, DAILY (1/D)
     Route: 063
     Dates: start: 20090101

REACTIONS (3)
  - DRUG EXPOSURE DURING PREGNANCY [None]
  - DRUG EXPOSURE VIA BREAST MILK [None]
  - NEONATAL RESPIRATORY DISTRESS SYNDROME [None]
